FAERS Safety Report 24904999 (Version 1)
Quarter: 2025Q1

REPORT INFORMATION
  Report Type: Spontaneous
  Country: UA (occurrence: UA)
  Receive Date: 20250130
  Receipt Date: 20250130
  Transmission Date: 20250408
  Serious: Yes (Death)
  Sender: PFIZER
  Company Number: UA-PFIZER INC-202500019046

PATIENT
  Sex: Female

DRUGS (3)
  1. BESPONSA [Suspect]
     Active Substance: INOTUZUMAB OZOGAMICIN
     Indication: B-cell type acute leukaemia
  2. BESPONSA [Suspect]
     Active Substance: INOTUZUMAB OZOGAMICIN
  3. BESPONSA [Suspect]
     Active Substance: INOTUZUMAB OZOGAMICIN

REACTIONS (2)
  - Haemorrhagic stroke [Fatal]
  - Pancytopenia [Fatal]
